FAERS Safety Report 13347574 (Version 1)
Quarter: 2017Q1

REPORT INFORMATION
  Report Type: Not Available
  Country: US (occurrence: US)
  Receive Date: 20170317
  Receipt Date: 20170317
  Transmission Date: 20170428
  Serious: No
  Sender: FDA-Public Use
  Company Number: US-CIPHERPHARMA-2016-US-009155

PATIENT
  Age: 32 Year
  Sex: Female

DRUGS (1)
  1. SITAVIG [Suspect]
     Active Substance: ACYCLOVIR
     Route: 050

REACTIONS (1)
  - Drug ineffective [Unknown]
